FAERS Safety Report 18016526 (Version 2)
Quarter: 2020Q3

REPORT INFORMATION
  Report Type: Report from Study
  Country: TW (occurrence: TW)
  Receive Date: 20200714
  Receipt Date: 20200722
  Transmission Date: 20201103
  Serious: Yes (Other)
  Sender: FDA-Public Use
  Company Number: TW-EMD SERONO-9173866

PATIENT
  Age: 13 Year
  Sex: Female
  Weight: 33 kg

DRUGS (1)
  1. SAIZEN [Suspect]
     Active Substance: SOMATROPIN
     Indication: GROWTH HORMONE DEFICIENCY
     Route: 058
     Dates: end: 202007

REACTIONS (1)
  - Epiphyses premature fusion [Unknown]

NARRATIVE: CASE EVENT DATE: 20200705
